FAERS Safety Report 4379595-2 (Version None)
Quarter: 2004Q2

REPORT INFORMATION
  Report Type: 
  Country: None (occurrence: None)
  Receive Date: 20040427
  Receipt Date: 20040322
  Transmission Date: 20050107
  Serious: Yes (Other)
  Sender: FDA-Public Use
  Company Number: 362415

PATIENT
  Sex: Female

DRUGS (1)
  1. VALCYTE [Suspect]
     Dosage: ORAL
     Route: 048
     Dates: start: 20020615

REACTIONS (1)
  - MENSTRUATION IRREGULAR [None]
